FAERS Safety Report 20517711 (Version 2)
Quarter: 2022Q2

REPORT INFORMATION
  Report Type: Spontaneous
  Country: CN (occurrence: None)
  Receive Date: 20220225
  Receipt Date: 20220403
  Transmission Date: 20220720
  Serious: Yes (Other)
  Sender: FDA-Public Use
  Company Number: CN-ROCHE-3028113

PATIENT
  Age: 67 Year
  Sex: Male

DRUGS (7)
  1. GAZYVA [Suspect]
     Active Substance: OBINUTUZUMAB
     Indication: Chronic lymphocytic leukaemia
     Dosage: THE FIRST CYCLE, AT 1000MG ON DAY 1, 900MG ON DAY 2, 1000MG ON DAY 8, 1000MG ON DAY 15
     Route: 042
     Dates: start: 20211030
  2. GAZYVA [Suspect]
     Active Substance: OBINUTUZUMAB
     Dosage: ON 25/NOV/2021, 06/JAN/2022. FOR 2 CYCLES
     Route: 042
     Dates: start: 20211125
  3. GAZYVA [Suspect]
     Active Substance: OBINUTUZUMAB
     Dosage: THE FOURTH CYCLE, 28 DAYS AS A CYCLE
     Route: 042
  4. CHLORAMBUCIL [Concomitant]
     Active Substance: CHLORAMBUCIL
     Indication: Chronic lymphocytic leukaemia
     Dosage: INTERMITTENTLY TREATMENT
     Route: 065
     Dates: end: 201905
  5. ZANUBRUTINIB [Concomitant]
     Active Substance: ZANUBRUTINIB
     Indication: Chronic lymphocytic leukaemia
     Dosage: THE FIRST CYCLE
     Route: 065
     Dates: start: 20211030
  6. ZANUBRUTINIB [Concomitant]
     Active Substance: ZANUBRUTINIB
     Dosage: ON 25/NOV/2021, 06/JAN/2022. FOR 2 CYCLES
     Route: 065
     Dates: start: 20211125
  7. ZANUBRUTINIB [Concomitant]
     Active Substance: ZANUBRUTINIB
     Dosage: THE FOURTH CYCLE
     Route: 065

REACTIONS (2)
  - Myelosuppression [Unknown]
  - Off label use [Unknown]
